FAERS Safety Report 7964280-8 (Version None)
Quarter: 2011Q4

REPORT INFORMATION
  Report Type: 
  Country: None (occurrence: None)
  Receive Date: 20111205
  Receipt Date: 20111119
  Transmission Date: 20120403
  Serious: Yes (Hospitalization)
  Sender: FDA-Public Use
  Company Number: 2011AP002766

PATIENT
  Age: 22 Year
  Sex: Male

DRUGS (2)
  1. CARBAMAZEPINE [Suspect]
     Indication: PRODUCT USED FOR UNKNOWN INDICATION
  2. QUETIAPINE [Suspect]
     Indication: PRODUCT USED FOR UNKNOWN INDICATION

REACTIONS (7)
  - UNRESPONSIVE TO STIMULI [None]
  - ILEUS PARALYTIC [None]
  - MUCOSAL DRYNESS [None]
  - GRAND MAL CONVULSION [None]
  - DRUG LEVEL INCREASED [None]
  - AGITATION [None]
  - OVERDOSE [None]
